FAERS Safety Report 5067148-2 (Version None)
Quarter: 2006Q3

REPORT INFORMATION
  Report Type: 
  Country: None (occurrence: None)
  Receive Date: 20060727
  Receipt Date: 20060714
  Transmission Date: 20061208
  Serious: Yes (Other)
  Sender: FDA-Public Use
  Company Number: 2006064567

PATIENT
  Age: 67 Year
  Sex: Male
  Weight: 79.3795 kg

DRUGS (6)
  1. GENOTROPIN [Suspect]
     Indication: GROWTH HORMONE DEFICIENCY
     Dosage: 0.5 MG (0.5 MG, 1 IN 1 D), SUBCUTANEOUS
     Route: 058
     Dates: start: 20060426
  2. AMILORIDE [Concomitant]
  3. ZOCOR [Concomitant]
  4. ZYRTEC [Concomitant]
  5. ALLEGRA [Concomitant]
  6. CLARITIN [Concomitant]

REACTIONS (3)
  - FATIGUE [None]
  - PITUITARY TUMOUR RECURRENT [None]
  - VISION BLURRED [None]
